FAERS Safety Report 9027860 (Version 1)
Quarter: 2013Q1

REPORT INFORMATION
  Report Type: Spontaneous
  Country: US (occurrence: US)
  Receive Date: 20130124
  Receipt Date: 20130124
  Transmission Date: 20140127
  Serious: Yes (Other)
  Sender: FDA-Public Use
  Company Number: US-TEVA-381983USA

PATIENT
  Sex: 0

DRUGS (1)
  1. MUPIROCIN [Suspect]
     Indication: SKIN DISORDER

REACTIONS (4)
  - Status epilepticus [Unknown]
  - Brain oedema [Unknown]
  - Convulsion [Unknown]
  - Incorrect route of drug administration [Unknown]
